FAERS Safety Report 5461050-X (Version None)
Quarter: 2007Q3

REPORT INFORMATION
  Report Type: 
  Country: None (occurrence: None)
  Receive Date: 20070810
  Receipt Date: 20061206
  Transmission Date: 20080115
  Serious: Yes (Life-Threatening, Other)
  Sender: FDA-Public Use
  Company Number: 200614705BWH

PATIENT
  Age: 66 Year
  Sex: Male

DRUGS (16)
  1. TRASYLOL [Suspect]
     Indication: CARDIAC DISORDER
     Dosage: 700 ML, ONCE, INTRAVENOUS; 2 ML, ONCE, INTRAVENOUS; 210 ML, ONCE, INTRAVENOUS
     Route: 042
     Dates: start: 20060101
  2. TRASYLOL [Suspect]
     Indication: CRYOTHERAPY
     Dosage: 700 ML, ONCE, INTRAVENOUS; 2 ML, ONCE, INTRAVENOUS; 210 ML, ONCE, INTRAVENOUS
     Route: 042
     Dates: start: 20060101
  3. TRASYLOL [Suspect]
     Indication: MITRAL VALVE REPAIR
     Dosage: 700 ML, ONCE, INTRAVENOUS; 2 ML, ONCE, INTRAVENOUS; 210 ML, ONCE, INTRAVENOUS
     Route: 042
     Dates: start: 20060101
  4. TRASYLOL [Suspect]
     Indication: CARDIAC DISORDER
     Dosage: 700 ML, ONCE, INTRAVENOUS; 2 ML, ONCE, INTRAVENOUS; 210 ML, ONCE, INTRAVENOUS
     Route: 042
     Dates: start: 20060101
  5. TRASYLOL [Suspect]
     Indication: CRYOTHERAPY
     Dosage: 700 ML, ONCE, INTRAVENOUS; 2 ML, ONCE, INTRAVENOUS; 210 ML, ONCE, INTRAVENOUS
     Route: 042
     Dates: start: 20060101
  6. TRASYLOL [Suspect]
     Indication: MITRAL VALVE REPAIR
     Dosage: 700 ML, ONCE, INTRAVENOUS; 2 ML, ONCE, INTRAVENOUS; 210 ML, ONCE, INTRAVENOUS
     Route: 042
     Dates: start: 20060101
  7. TRASYLOL [Suspect]
     Indication: CARDIAC DISORDER
     Dosage: 700 ML, ONCE, INTRAVENOUS; 2 ML, ONCE, INTRAVENOUS; 210 ML, ONCE, INTRAVENOUS
     Route: 042
     Dates: start: 20060101
  8. TRASYLOL [Suspect]
     Indication: CRYOTHERAPY
     Dosage: 700 ML, ONCE, INTRAVENOUS; 2 ML, ONCE, INTRAVENOUS; 210 ML, ONCE, INTRAVENOUS
     Route: 042
     Dates: start: 20060101
  9. TRASYLOL [Suspect]
     Indication: MITRAL VALVE REPAIR
     Dosage: 700 ML, ONCE, INTRAVENOUS; 2 ML, ONCE, INTRAVENOUS; 210 ML, ONCE, INTRAVENOUS
     Route: 042
     Dates: start: 20060101
  10. MIDAZOLAM HCL [Concomitant]
  11. FENTANYL [Concomitant]
  12. ETOMIDATE [Concomitant]
  13. PANCURONIUM [Concomitant]
  14. ISOFLURANE [Concomitant]
  15. PROPOFOL [Concomitant]
  16. PANCURONIUM [Concomitant]

REACTIONS (2)
  - ANAPHYLACTIC REACTION [None]
  - CARDIAC FAILURE CONGESTIVE [None]
